FAERS Safety Report 23446297 (Version 1)
Quarter: 2024Q1

REPORT INFORMATION
  Report Type: Report from Study
  Country: US (occurrence: None)
  Receive Date: 20240126
  Receipt Date: 20240126
  Transmission Date: 20240409
  Serious: Yes (Hospitalization, Other)
  Sender: FDA-Public Use
  Company Number: 2024A017605

PATIENT
  Sex: Male

DRUGS (1)
  1. LYNPARZA [Suspect]
     Active Substance: OLAPARIB
     Route: 048
     Dates: start: 20230917

REACTIONS (6)
  - Bone disorder [Unknown]
  - Hip deformity [Unknown]
  - Anaemia [Unknown]
  - White blood cell count decreased [Unknown]
  - Drug intolerance [Unknown]
  - Disease progression [Unknown]
